FAERS Safety Report 9190151 (Version 1)
Quarter: 2013Q1

REPORT INFORMATION
  Report Type: Spontaneous
  Country: SE (occurrence: SE)
  Receive Date: 20130326
  Receipt Date: 20130326
  Transmission Date: 20140127
  Serious: Yes (Hospitalization)
  Sender: FDA-Public Use
  Company Number: SE-NOVOPROD-371424

PATIENT
  Sex: Female

DRUGS (9)
  1. NOVORAPID FLEXPEN [Suspect]
     Indication: TYPE 2 DIABETES MELLITUS
     Dosage: 28+22+22
     Route: 058
  2. LANTUS [Concomitant]
     Dosage: 40 IU, BID
  3. RAMIPRIL [Concomitant]
     Dosage: 25 MG
  4. ZOPIKLON [Concomitant]
  5. MOVICOL                            /01625101/ [Concomitant]
  6. SIMVASTATIN [Concomitant]
  7. METOPROLOL [Concomitant]
     Dosage: 50 MG
  8. MULTAQ [Concomitant]
     Dosage: 400 MG
  9. WARAN [Concomitant]
     Indication: ATRIAL FIBRILLATION

REACTIONS (3)
  - Hospitalisation [Unknown]
  - Device component issue [Unknown]
  - Blood glucose increased [Unknown]
